FAERS Safety Report 7880737-2 (Version None)
Quarter: 2011Q4

REPORT INFORMATION
  Report Type: 
  Country: None (occurrence: None)
  Receive Date: 20111101
  Receipt Date: 20111019
  Transmission Date: 20120403
  Serious: Yes (Other)
  Sender: FDA-Public Use
  Company Number: US-ELI_LILLY_AND_COMPANY-US201110005542

PATIENT
  Age: 8 Year
  Sex: Male
  Weight: 40 kg

DRUGS (2)
  1. STRATTERA [Suspect]
     Indication: ATTENTION DEFICIT/HYPERACTIVITY DISORDER
     Dosage: 25 MG, UNKNOWN
  2. DIGOXIN [Concomitant]
     Indication: SUPRAVENTRICULAR TACHYCARDIA

REACTIONS (2)
  - SUPRAVENTRICULAR TACHYCARDIA [None]
  - OFF LABEL USE [None]
